FAERS Safety Report 5937424-7 (Version None)
Quarter: 2008Q4

REPORT INFORMATION
  Report Type: 
  Country: None (occurrence: None)
  Receive Date: 20081031
  Receipt Date: 20081024
  Transmission Date: 20090506
  Serious: Yes (Death, Hospitalization)
  Sender: FDA-Public Use
  Company Number: A0716466A

PATIENT
  Age: 74 Year
  Sex: Male

DRUGS (1)
  1. AVANDIA [Suspect]
     Dosage: 4MG PER DAY
     Route: 065
     Dates: start: 20040101, end: 20070601

REACTIONS (3)
  - ANXIETY [None]
  - MYOCARDIAL INFARCTION [None]
  - PAIN [None]
